FAERS Safety Report 7599713-2 (Version None)
Quarter: 2011Q2

REPORT INFORMATION
  Report Type: 
  Country: None (occurrence: None)
  Receive Date: 20110629
  Receipt Date: 20110614
  Transmission Date: 20111010
  Serious: Yes (Life-Threatening)
  Sender: FDA-Public Use
  Company Number: TCI2011A03534

PATIENT
  Age: 68 Year
  Sex: Female

DRUGS (11)
  1. OMEPRAZOLE [Concomitant]
  2. UNIPHYL [Concomitant]
  3. APRINDINE HYDROCHLORIDE [Concomitant]
  4. CRESTOR [Concomitant]
  5. ALESION (EPINASTINE HYDROCHLORIDE) [Concomitant]
  6. AMLODIPINE BESYLATE [Concomitant]
  7. BLOPRESS TABLETS 4 (CANDESARTAN CILEXETIL) [Concomitant]
  8. ACTOS [Suspect]
     Indication: TYPE 2 DIABETES MELLITUS
     Dosage: 15 MG (15 MG, 1 D)
     Route: 048
     Dates: start: 20090707, end: 20100608
  9. MONTELUKAST SODIUM [Concomitant]
  10. WARFARIN (WARFARIN POTASSIUM) [Concomitant]
  11. ADOAIR (FLUTICASONE PROPIONATE, SALMETEROL XINAFOATE) [Concomitant]

REACTIONS (1)
  - BLADDER CANCER [None]
